FAERS Safety Report 13000020 (Version 2)
Quarter: 2016Q4

REPORT INFORMATION
  Report Type: Spontaneous
  Country: US (occurrence: US)
  Receive Date: 20161205
  Receipt Date: 20161205
  Transmission Date: 20170207
  Serious: No
  Sender: FDA-Public Use
  Company Number: US-ASTRAZENECA-2016SF18353

PATIENT
  Sex: Male
  Weight: 81.6 kg

DRUGS (2)
  1. OTHER MEDICATIONS [Concomitant]
     Active Substance: UNSPECIFIED INGREDIENT
  2. BYDUREON [Suspect]
     Active Substance: EXENATIDE
     Indication: GLUCOSE TOLERANCE IMPAIRED
     Dosage: 2 MG, DOSING UNKNOWN
     Route: 058

REACTIONS (3)
  - Needle issue [Unknown]
  - Visual impairment [Unknown]
  - Drug dose omission [Unknown]
